FAERS Safety Report 9056877 (Version 1)
Quarter: 2013Q1

REPORT INFORMATION
  Report Type: Report from Study
  Country: JP (occurrence: JP)
  Receive Date: 20130201
  Receipt Date: 20130201
  Transmission Date: 20140127
  Serious: Yes (Other)
  Sender: FDA-Public Use
  Company Number: JP-GLAXOSMITHKLINE-B0860847A

PATIENT
  Age: 70 None
  Sex: Female
  Weight: 46 kg

DRUGS (16)
  1. TYKERB [Suspect]
     Indication: BREAST CANCER
     Route: 048
     Dates: start: 20100804, end: 20100815
  2. TYKERB [Suspect]
     Indication: BREAST CANCER
     Route: 048
     Dates: start: 20100824, end: 20100906
  3. TYKERB [Suspect]
     Indication: BREAST CANCER
     Route: 048
     Dates: start: 20100914, end: 20110802
  4. TYKERB [Suspect]
     Indication: BREAST CANCER
     Route: 048
     Dates: start: 20110808
  5. XELODA [Suspect]
     Route: 048
     Dates: start: 20100804, end: 20100823
  6. XELODA [Suspect]
     Route: 048
     Dates: start: 20100824, end: 20100913
  7. XELODA [Suspect]
     Route: 048
     Dates: start: 20100914, end: 20101115
  8. XELODA [Suspect]
     Route: 048
     Dates: start: 20101116, end: 20101206
  9. XELODA [Suspect]
     Route: 048
     Dates: start: 20101207, end: 20110802
  10. XELODA [Suspect]
     Route: 048
     Dates: start: 20110823
  11. ALLELOCK [Concomitant]
     Indication: SKIN DISORDER
     Route: 048
  12. PAXIL [Concomitant]
     Indication: PANIC DISORDER
     Route: 048
  13. PARIET [Concomitant]
     Indication: GASTRITIS PROPHYLAXIS
     Route: 048
     Dates: start: 20100804
  14. GASLON N [Concomitant]
     Indication: GASTRITIS PROPHYLAXIS
     Route: 048
     Dates: start: 20100804
  15. BIO-THREE [Concomitant]
     Indication: DIARRHOEA
     Route: 048
     Dates: start: 20100804
  16. WHITE PETROLATUM [Concomitant]
     Indication: SKIN DISORDER
     Route: 061
     Dates: start: 20100804

REACTIONS (12)
  - Cellulitis [Recovering/Resolving]
  - Diarrhoea [Recovering/Resolving]
  - Erythema [Recovering/Resolving]
  - Oral herpes [Recovering/Resolving]
  - Erythema [Recovering/Resolving]
  - Alanine aminotransferase increased [Recovered/Resolved]
  - Aspartate aminotransferase increased [Not Recovered/Not Resolved]
  - Amylase increased [Not Recovered/Not Resolved]
  - Blood bilirubin increased [Recovered/Resolved]
  - Pain in extremity [Recovered/Resolved]
  - Blood bilirubin increased [Recovered/Resolved]
  - Diarrhoea [Recovering/Resolving]
